FAERS Safety Report 9179633 (Version 1)
Quarter: 2012Q4

REPORT INFORMATION
  Report Type: Report from Study
  Country: JP (occurrence: JP)
  Receive Date: 20121029
  Receipt Date: 20121029
  Transmission Date: 20130627
  Serious: Yes (Other)
  Sender: FDA-Public Use
  Company Number: JP-GLAXOSMITHKLINE-B0686167A

PATIENT
  Age: 72 None
  Sex: Female

DRUGS (2)
  1. TYKERB [Suspect]
     Indication: BREAST CANCER
     Dosage: 1000MG Per day
     Route: 048
     Dates: start: 20100902, end: 20101109
  2. XELODA [Suspect]
     Indication: BREAST CANCER
     Dosage: 600MG Per day
     Route: 048
     Dates: start: 20100902, end: 20101109

REACTIONS (1)
  - Platelet count decreased [Recovering/Resolving]
